FAERS Safety Report 23477347 (Version 1)
Quarter: 2024Q1

REPORT INFORMATION
  Report Type: Report from Study
  Country: US (occurrence: US)
  Receive Date: 20240204
  Receipt Date: 20240204
  Transmission Date: 20240410
  Serious: No
  Sender: FDA-Public Use
  Company Number: US-EXELIXIS-CABO-23066545

PATIENT
  Age: 78 Year
  Sex: Male

DRUGS (26)
  1. CABOMETYX [Suspect]
     Active Substance: CABOZANTINIB S-MALATE
     Indication: Thyroid cancer
     Dosage: 40 MG, QD
     Dates: start: 20230804
  2. LEVOTHYROXINE [Concomitant]
     Active Substance: LEVOTHYROXINE\LEVOTHYROXINE SODIUM
  3. LOSARTAN [Concomitant]
     Active Substance: LOSARTAN
  4. OCUVITE [Concomitant]
     Active Substance: VITAMINS
  5. AMLODIPINE [Concomitant]
     Active Substance: AMLODIPINE BESYLATE
  6. OMEPRAZOLE [Concomitant]
     Active Substance: OMEPRAZOLE
  7. METOPROLOL [Concomitant]
     Active Substance: METOPROLOL
  8. PREDNISONE [Concomitant]
     Active Substance: PREDNISONE
  9. VITAMIN E [Concomitant]
     Active Substance: .ALPHA.-TOCOPHEROL
  10. FISH OIL [Concomitant]
     Active Substance: FISH OIL
  11. VITAMIN C [Concomitant]
     Active Substance: ASCORBIC ACID
  12. COENZYME Q10 [Concomitant]
     Active Substance: DIETARY SUPPLEMENT\UBIDECARENONE
  13. VITAMIN D3 [Concomitant]
     Active Substance: CHOLECALCIFEROL
  14. VITAMIN B12 [Concomitant]
     Active Substance: CYANOCOBALAMIN
  15. Berberin [Concomitant]
  16. ALBUTEROL SULFATE [Concomitant]
     Active Substance: ALBUTEROL SULFATE
  17. APPLE CIDER VINEGAR [Concomitant]
     Active Substance: APPLE CIDER VINEGAR
  18. BENZONATATE [Concomitant]
     Active Substance: BENZONATATE
  19. GARLIC [Concomitant]
     Active Substance: GARLIC
  20. CODEINE PHOSPHATE\GUAIFENESIN [Concomitant]
     Active Substance: CODEINE PHOSPHATE\GUAIFENESIN
  21. MORPHINE [Concomitant]
     Active Substance: MORPHINE
  22. ONDANSETRON [Concomitant]
     Active Substance: ONDANSETRON
  23. OXYBUTYNIN [Concomitant]
     Active Substance: OXYBUTYNIN\OXYBUTYNIN CHLORIDE
  24. POTASSIUM [Concomitant]
     Active Substance: POTASSIUM
  25. PROCHLORPERAZINE [Concomitant]
     Active Substance: PROCHLORPERAZINE
  26. TART CHERRY [Concomitant]

REACTIONS (6)
  - Odynophagia [Not Recovered/Not Resolved]
  - Constipation [Not Recovered/Not Resolved]
  - Diarrhoea [Not Recovered/Not Resolved]
  - Dysphonia [Not Recovered/Not Resolved]
  - Blister [Not Recovered/Not Resolved]
  - Oropharyngeal pain [Not Recovered/Not Resolved]

NARRATIVE: CASE EVENT DATE: 20231011
